FAERS Safety Report 10290569 (Version 4)
Quarter: 2014Q4

REPORT INFORMATION
  Report Type: Spontaneous
  Country: JP (occurrence: JP)
  Receive Date: 20140710
  Receipt Date: 20141105
  Transmission Date: 20150528
  Serious: No
  Sender: FDA-Public Use
  Company Number: JP-009507513-1406JPN008558

PATIENT
  Age: 25 Year
  Sex: Male
  Weight: 52 kg

DRUGS (4)
  1. TEMODAL [Suspect]
     Active Substance: TEMOZOLOMIDE
     Indication: GLIOMA
     Dosage: 240 MG, QD
     Route: 048
     Dates: start: 20140512, end: 20140516
  2. TEMODAL [Suspect]
     Active Substance: TEMOZOLOMIDE
     Dosage: 240 MG, QD
     Route: 048
     Dates: start: 20140609, end: 20140613
  3. TEMODAL [Suspect]
     Active Substance: TEMOZOLOMIDE
     Dosage: 240 MG, QD
     Route: 048
     Dates: start: 20140707, end: 20140711
  4. TEMODAL [Suspect]
     Active Substance: TEMOZOLOMIDE
     Dosage: DAILY DOSE UNKNOWN
     Route: 048
     Dates: start: 201111, end: 201210

REACTIONS (6)
  - Penile ulceration [Recovering/Resolving]
  - Penile ulceration [Recovering/Resolving]
  - Oral mucosa erosion [Recovering/Resolving]
  - Oral mucosa erosion [Recovering/Resolving]
  - Oral mucosa erosion [Recovering/Resolving]
  - Penile ulceration [Recovering/Resolving]

NARRATIVE: CASE EVENT DATE: 20140512
